FAERS Safety Report 9661349 (Version 2)
Quarter: 2013Q4

REPORT INFORMATION
  Report Type: Spontaneous
  Country: US (occurrence: US)
  Receive Date: 20131031
  Receipt Date: 20131227
  Transmission Date: 20140711
  Serious: Yes (Hospitalization)
  Sender: FDA-Public Use
  Company Number: US-SA-2013SA111250

PATIENT
  Age: 71 Year
  Sex: Male
  Weight: 59 kg

DRUGS (13)
  1. AUBAGIO [Suspect]
     Indication: MULTIPLE SCLEROSIS
     Route: 048
     Dates: start: 20130825, end: 20131025
  2. CENTRUM SILVER [Concomitant]
  3. PROTONIX [Concomitant]
  4. XANAX [Concomitant]
  5. CARBAMAZEPINE [Concomitant]
  6. ADVIL [Concomitant]
  7. THIAMINE [Concomitant]
  8. OMEGA 3 [Concomitant]
  9. VITAMIN B6 [Concomitant]
  10. OCUVITE [Concomitant]
  11. VITAMIN C [Concomitant]
  12. B COMPLEX [Concomitant]
  13. VITAMIN E [Concomitant]
     Dosage: DOSE:400 UNIT(S)

REACTIONS (4)
  - Cerebrovascular accident [Unknown]
  - Pyrexia [Unknown]
  - Loss of consciousness [Unknown]
  - Loss of control of legs [Unknown]
